FAERS Safety Report 23553898 (Version 1)
Quarter: 2024Q1

REPORT INFORMATION
  Report Type: Spontaneous
  Country: CN (occurrence: CN)
  Receive Date: 20240222
  Receipt Date: 20240222
  Transmission Date: 20240410
  Serious: Yes (Other)
  Sender: FDA-Public Use
  Company Number: CN-PFIZER INC-PV202400024184

PATIENT
  Age: 76 Year
  Sex: Male
  Weight: 68 kg

DRUGS (2)
  1. NIRMATRELVIR\RITONAVIR [Suspect]
     Active Substance: NIRMATRELVIR\RITONAVIR
     Indication: Coronavirus pneumonia
     Dosage: 300 MG, 2X/DAY
     Route: 048
     Dates: start: 20240123, end: 20240125
  2. DEXAMETHASONE SODIUM PHOSPHATE [Suspect]
     Active Substance: DEXAMETHASONE PHOSPHATE\DEXAMETHASONE SODIUM PHOSPHATE
     Indication: Coronavirus pneumonia
     Dosage: 6 MG, 1X/DAY
     Route: 041
     Dates: start: 20240123, end: 20240125

REACTIONS (3)
  - Hallucinations, mixed [Recovered/Resolved]
  - Abnormal behaviour [Recovered/Resolved]
  - Disorganised speech [Recovered/Resolved]

NARRATIVE: CASE EVENT DATE: 20240123
